FAERS Safety Report 9642174 (Version 1)
Quarter: 2013Q4

REPORT INFORMATION
  Report Type: Report from Study
  Country: US (occurrence: US)
  Receive Date: 20131023
  Receipt Date: 20131023
  Transmission Date: 20140711
  Serious: Yes (Other)
  Sender: FDA-Public Use
  Company Number: US-ROCHE-1290255

PATIENT
  Sex: Female

DRUGS (11)
  1. RITUXAN [Suspect]
     Indication: PRODUCT USED FOR UNKNOWN INDICATION
     Route: 042
     Dates: start: 20131011, end: 20131011
  2. FAMOTIDINE [Concomitant]
     Route: 065
  3. FOSAMAX [Concomitant]
     Route: 065
  4. SYNTHROID [Concomitant]
     Route: 065
  5. ALPRAZOLAM [Concomitant]
     Route: 065
  6. LEXAPRO [Concomitant]
     Route: 065
  7. BENZONATATE [Concomitant]
     Route: 065
  8. ABILIFY [Concomitant]
     Route: 065
  9. FOLIC ACID [Concomitant]
     Route: 065
  10. IMURAN [Concomitant]
     Route: 065
  11. PREDNISONE [Concomitant]
     Route: 065

REACTIONS (2)
  - Haemoptysis [Unknown]
  - Injection site pain [Unknown]
